FAERS Safety Report 11749806 (Version 1)
Quarter: 2015Q4

REPORT INFORMATION
  Report Type: Spontaneous
  Country: US (occurrence: US)
  Receive Date: 20151118
  Receipt Date: 20151118
  Transmission Date: 20160304
  Serious: No
  Sender: FDA-Public Use
  Company Number: US-B.I. PHARMACEUTICALS,INC./RIDGEFIELD-2015-BI-62744BP

PATIENT
  Age: 75 Year
  Sex: Female
  Weight: 60 kg

DRUGS (5)
  1. VFEND [Concomitant]
     Active Substance: VORICONAZOLE
     Indication: ASPERGILLOMA
     Dosage: 10 ANZ
     Route: 048
     Dates: start: 201510
  2. PRADAXA [Suspect]
     Active Substance: DABIGATRAN ETEXILATE MESYLATE
     Indication: PRODUCT USED FOR UNKNOWN INDICATION
     Route: 065
  3. VFEND [Concomitant]
     Active Substance: VORICONAZOLE
     Dosage: 4 ANZ
     Route: 048
     Dates: start: 201501
  4. VFEND [Concomitant]
     Active Substance: VORICONAZOLE
     Dosage: 12 ANZ
     Route: 048
     Dates: start: 20151110
  5. VFEND [Concomitant]
     Active Substance: VORICONAZOLE
     Dosage: 6 ANZ
     Route: 048
     Dates: start: 201502

REACTIONS (5)
  - Visual impairment [Unknown]
  - Balance disorder [Unknown]
  - Haemoptysis [Recovered/Resolved]
  - Feeling abnormal [Unknown]
  - Therapy change [Not Recovered/Not Resolved]

NARRATIVE: CASE EVENT DATE: 201510
